FAERS Safety Report 17692466 (Version 2)
Quarter: 2020Q3

REPORT INFORMATION
  Report Type: Spontaneous
  Country: CL (occurrence: EC)
  Receive Date: 20200422
  Receipt Date: 20200706
  Transmission Date: 20201102
  Serious: Yes (Death, Other)
  Sender: FDA-Public Use
  Company Number: EC-ASTELLAS-2020US014223

PATIENT
  Age: 77 Year
  Sex: Male

DRUGS (2)
  1. ZOLEDRONATE [Suspect]
     Active Substance: ZOLEDRONIC ACID
     Indication: PROSTATE CANCER
     Route: 042
     Dates: start: 20191226, end: 20200227
  2. XTANDI [Suspect]
     Active Substance: ENZALUTAMIDE
     Indication: PROSTATE CANCER
     Route: 048
     Dates: start: 20191227, end: 20200406

REACTIONS (5)
  - Pallor [Unknown]
  - Death [Fatal]
  - Haematuria [Not Recovered/Not Resolved]
  - Infection [Unknown]
  - Asthenia [Unknown]

NARRATIVE: CASE EVENT DATE: 20200221
